FAERS Safety Report 8423554-7 (Version None)
Quarter: 2012Q2

REPORT INFORMATION
  Report Type: 
  Country: None (occurrence: None)
  Receive Date: 20120608
  Receipt Date: 20120530
  Transmission Date: 20120825
  Serious: Yes (Other)
  Sender: FDA-Public Use
  Company Number: JP-VERTEX PHARMACEUTICALS INC.-AE-2012-008318

PATIENT
  Age: 65 Year
  Sex: Male

DRUGS (25)
  1. TELAVIC (TELAPREVIR) [Suspect]
     Indication: HEPATITIS C
     Route: 048
     Dates: start: 20120214, end: 20120416
  2. ASPIRIN [Concomitant]
     Route: 048
     Dates: end: 20120101
  3. LAC-B [Concomitant]
     Route: 048
  4. MAGNESIUM HYDROXIDE TAB [Concomitant]
     Route: 048
  5. LEVOFLOXACIN [Concomitant]
     Route: 048
     Dates: start: 20120501, end: 20120503
  6. TELAVIC (TELAPREVIR) [Suspect]
     Route: 048
     Dates: start: 20120417, end: 20120505
  7. MAGNESIUM HYDROXIDE TAB [Concomitant]
     Route: 048
  8. LANSOPRAZOLE [Concomitant]
     Route: 048
  9. PEGINTERFERON ALFA-2B [Concomitant]
     Indication: HEPATITIS C
     Route: 051
     Dates: start: 20120214
  10. DILTIAZEM HCL [Concomitant]
     Route: 048
  11. FAMOTIDINE [Concomitant]
     Route: 048
     Dates: start: 20120417, end: 20120508
  12. REBETOL [Concomitant]
     Indication: HEPATITIS C
     Route: 048
     Dates: start: 20120214, end: 20120410
  13. REBETOL [Concomitant]
     Route: 048
     Dates: start: 20120411, end: 20120424
  14. GLUCOBAY [Concomitant]
     Route: 048
  15. GLUFAST [Concomitant]
     Route: 048
  16. PANCREAZE [Concomitant]
     Route: 048
  17. ISODINE GARGLE [Concomitant]
     Route: 049
     Dates: start: 20120501, end: 20120507
  18. JANUVIA [Concomitant]
     Route: 048
  19. LAC-B [Concomitant]
     Route: 048
  20. REBETOL [Concomitant]
     Route: 048
     Dates: start: 20120425
  21. LANTUS INJ SOLOSTAR [Concomitant]
     Route: 058
  22. MAGNESIUM OXIDE [Concomitant]
     Route: 048
  23. MAGNESIUM OXIDE [Concomitant]
     Route: 048
  24. PANCREAZE [Concomitant]
     Route: 048
  25. LANSOPRAZOLE [Concomitant]
     Route: 048

REACTIONS (2)
  - RASH [None]
  - HAEMOGLOBIN DECREASED [None]
